FAERS Safety Report 6749309-7 (Version None)
Quarter: 2010Q2

REPORT INFORMATION
  Report Type: 
  Country: None (occurrence: None)
  Receive Date: 20100601
  Receipt Date: 20100517
  Transmission Date: 20101027
  Serious: Yes (Other)
  Sender: FDA-Public Use
  Company Number: US-ASTRAZENECA-2009SE17405

PATIENT
  Sex: Female
  Weight: 73.8 kg

DRUGS (7)
  1. SEROQUEL [Suspect]
     Dosage: 200MG 2 PO DAILY AT NIGHT
     Route: 048
     Dates: start: 20051003
  2. DOCUSET SODIUM [Concomitant]
     Route: 048
     Dates: start: 20051003
  3. NEXIUM [Concomitant]
     Route: 048
     Dates: start: 20050912
  4. METHADONE [Concomitant]
     Dosage: 5MG 2 PO BID
     Dates: start: 20051003
  5. LIPITOR [Concomitant]
     Dosage: 20MG 1/2 PO DAILY HS
     Dates: start: 20050608, end: 20060118
  6. DITROPAN [Concomitant]
     Dates: start: 20041227
  7. CARBAMAZEPINE [Concomitant]

REACTIONS (2)
  - DIABETES MELLITUS [None]
  - DIABETIC NEUROPATHY [None]
